FAERS Safety Report 14848183 (Version 2)
Quarter: 2018Q2

REPORT INFORMATION
  Report Type: Spontaneous
  Country: DE (occurrence: DE)
  Receive Date: 20180504
  Receipt Date: 20180625
  Transmission Date: 20180711
  Serious: Yes (Death, Life-Threatening, Other)
  Sender: FDA-Public Use
  Company Number: DE-BRISTOL-MYERS SQUIBB COMPANY-BMS-2018-038774

PATIENT
  Age: 80 Year
  Sex: Female

DRUGS (2)
  1. METAMIZOLE [Concomitant]
     Active Substance: METAMIZOLE
     Indication: BONE PAIN
     Dosage: 500 MG, QID
     Route: 065
  2. ELIQUIS [Suspect]
     Active Substance: APIXABAN
     Indication: CEREBROVASCULAR ACCIDENT PROPHYLAXIS
     Dosage: 2.5 MG, BID
     Route: 048
     Dates: start: 20180413, end: 20180418

REACTIONS (3)
  - Pulmonary sepsis [Fatal]
  - Haemorrhage [Unknown]
  - Drug-induced liver injury [Fatal]

NARRATIVE: CASE EVENT DATE: 20180416
